FAERS Safety Report 13925431 (Version 1)
Quarter: 2017Q3

REPORT INFORMATION
  Report Type: Spontaneous
  Country: US (occurrence: US)
  Receive Date: 20170831
  Receipt Date: 20170831
  Transmission Date: 20171127
  Serious: Yes (Life-Threatening)
  Sender: FDA-Public Use
  Company Number: US-STANDARD HOMEOPATHIC COMPANY-2025378

PATIENT
  Sex: Female

DRUGS (1)
  1. PRID [Suspect]
     Active Substance: HOMEOPATHICS
     Indication: DRUG THERAPY
     Route: 061
     Dates: start: 201708, end: 201708

REACTIONS (1)
  - Hypersensitivity [None]

NARRATIVE: CASE EVENT DATE: 20170818
